FAERS Safety Report 25006259 (Version 1)
Quarter: 2025Q1

REPORT INFORMATION
  Report Type: Spontaneous
  Country: CN (occurrence: CN)
  Receive Date: 20250224
  Receipt Date: 20250224
  Transmission Date: 20250408
  Serious: Yes (Death, Other)
  Sender: AMGEN
  Company Number: CN-AMGEN-CHNSP2025036007

PATIENT

DRUGS (3)
  1. XGEVA [Suspect]
     Active Substance: DENOSUMAB
     Indication: Metastases to bone
     Dosage: 120 MILLIGRAM, Q4WK
     Route: 058
  2. VITAMIN D [Concomitant]
     Active Substance: VITAMIN D NOS
     Route: 065
  3. CALCIUM [Concomitant]
     Active Substance: CALCIUM
     Dosage: 500 MILLIGRAM, QD
     Route: 065

REACTIONS (21)
  - Adverse event [Fatal]
  - Malignant neoplasm progression [Unknown]
  - Respiratory failure [Unknown]
  - Cerebral infarction [Unknown]
  - Metastases to meninges [Unknown]
  - Hypokalaemia [Unknown]
  - Pneumonia [Unknown]
  - White blood cell count decreased [Unknown]
  - Neutrophil count decreased [Unknown]
  - Aspartate aminotransferase increased [Unknown]
  - Alanine aminotransferase increased [Unknown]
  - Lymphocyte count decreased [Unknown]
  - Toothache [Unknown]
  - Decreased appetite [Unknown]
  - Anaemia [Unknown]
  - Platelet count decreased [Unknown]
  - Nausea [Unknown]
  - Asthenia [Unknown]
  - Diarrhoea [Unknown]
  - Hypocalcaemia [Unknown]
  - Hypophosphataemia [Unknown]
